FAERS Safety Report 6356638-8 (Version None)
Quarter: 2009Q3

REPORT INFORMATION
  Report Type: 
  Country: None (occurrence: None)
  Receive Date: 20090915
  Receipt Date: 20090905
  Transmission Date: 20100115
  Serious: No
  Sender: FDA-Public Use
  Company Number: US-B.I. PHARMACEUTICALS,INC./RIDGEFIELD-2009-BP-10585BP

PATIENT
  Sex: Male

DRUGS (6)
  1. FLOMAX [Suspect]
     Indication: BENIGN PROSTATIC HYPERPLASIA
     Dosage: 0.4 MG
     Route: 048
     Dates: start: 20090901, end: 20090901
  2. LIPITOR [Concomitant]
     Indication: BLOOD CHOLESTEROL INCREASED
     Route: 048
  3. PREDNISONE [Concomitant]
     Indication: ASTHMA
     Route: 048
  4. PLAVIX [Concomitant]
     Indication: BLOOD CHOLESTEROL INCREASED
     Route: 048
  5. ASPIRIN [Concomitant]
     Indication: CEREBROVASCULAR ACCIDENT
     Dosage: 81 MG
     Route: 048
  6. ADVAIR HFA [Concomitant]
     Indication: ASTHMA
     Route: 048

REACTIONS (3)
  - PALPITATIONS [None]
  - VISION BLURRED [None]
  - VOMITING [None]
